FAERS Safety Report 7251601-7 (Version None)
Quarter: 2011Q1

REPORT INFORMATION
  Report Type: 
  Country: None (occurrence: None)
  Receive Date: 20110128
  Receipt Date: 20110121
  Transmission Date: 20110831
  Serious: Yes (Hospitalization)
  Sender: FDA-Public Use
  Company Number: FR-PFIZER INC-2011015156

PATIENT
  Age: 61 Year
  Sex: Male

DRUGS (26)
  1. TARCEVA [Suspect]
     Dosage: 150 MG, 1X/DAY
     Route: 048
     Dates: start: 20101218
  2. DEPAKENE [Concomitant]
     Indication: CLONUS
  3. SOLU-MEDROL [Concomitant]
     Indication: CLONUS
     Dosage: UNK
     Dates: start: 20101217
  4. PERFALGAN [Concomitant]
     Indication: PAIN
     Dosage: AS NEEDED
  5. AUGMENTIN '125' [Suspect]
     Dosage: 1 G, 3X/DAY
     Route: 048
     Dates: start: 20101216, end: 20101223
  6. TARCEVA [Suspect]
     Dosage: UNK
     Route: 048
     Dates: start: 20101102
  7. LIPIDS NOS [Suspect]
     Dosage: UNK
     Dates: end: 20101224
  8. SOLU-MEDROL [Concomitant]
     Indication: HEMIPLEGIA
     Dosage: 60 MG DAILY
     Dates: start: 20101020
  9. KEPPRA [Suspect]
     Dosage: 500 MG, 2X/DAY
     Dates: start: 20101210
  10. NEORAL [Concomitant]
     Dosage: 20 MG DAILY
     Dates: start: 20070601
  11. DURAGESIC-100 [Concomitant]
     Dosage: UNK
     Dates: start: 20101109
  12. UVEDOSE [Concomitant]
     Dosage: UNK
     Dates: end: 20101201
  13. RANITIDINE [Concomitant]
     Dosage: UNK
     Dates: end: 20101201
  14. EXACYL [Suspect]
     Indication: HAEMOPTYSIS
     Dosage: 500 MG, 4X/DAY
     Route: 048
     Dates: start: 20101220
  15. CERTICAN [Concomitant]
     Dosage: 0.25 UNK, 2X/DAY
     Dates: start: 20070601
  16. ELISOR [Concomitant]
     Dosage: UNK
     Dates: end: 20101201
  17. INIPOMP [Suspect]
     Indication: OESOPHAGITIS
     Dosage: 40 MG, 1X/DAY
     Route: 048
     Dates: start: 20101210, end: 20101223
  18. DEPAKENE [Concomitant]
     Indication: HEMIPLEGIA
     Dosage: 500 MG, 2X/DAY
     Dates: start: 20101020, end: 20101201
  19. APROVEL [Concomitant]
     Dosage: UNK
     Dates: end: 20101201
  20. LEXOMIL [Concomitant]
     Dosage: UNK
     Dates: end: 20101213
  21. GLUCOSE [Suspect]
     Dosage: UNK
     Dates: end: 20101224
  22. AMINO ACIDS [Suspect]
     Dosage: UNK
     Dates: end: 20101224
  23. IMODIUM [Concomitant]
     Indication: PROPHYLAXIS AGAINST DIARRHOEA
     Dosage: UNK
     Dates: start: 20101102, end: 20101201
  24. XANAX [Suspect]
     Dosage: 0.75 MG, 1X/DAY
     Route: 048
     Dates: start: 20101213
  25. TARDYFERON [Concomitant]
     Dosage: UNK
     Dates: end: 20101201
  26. LOVENOX [Concomitant]
     Dosage: UNK
     Dates: end: 20101215

REACTIONS (4)
  - CONDITION AGGRAVATED [None]
  - HISTIOCYTOSIS HAEMATOPHAGIC [None]
  - HAEMOPTYSIS [None]
  - THROMBOCYTOPENIA [None]
